FAERS Safety Report 5014814-0 (Version None)
Quarter: 2006Q2

REPORT INFORMATION
  Report Type: 
  Country: None (occurrence: None)
  Receive Date: 20060412
  Receipt Date: 20050427
  Transmission Date: 20061013
  Serious: Yes (Hospitalization)
  Sender: FDA-Public Use
  Company Number: 2004-BP-08925BP

PATIENT
  Sex: 0

DRUGS (1)
  1. MOBIC [Suspect]

REACTIONS (1)
  - GASTROINTESTINAL HAEMORRHAGE [None]
